FAERS Safety Report 9532046 (Version 3)
Quarter: 2013Q4

REPORT INFORMATION
  Report Type: Spontaneous
  Country: AT (occurrence: AT)
  Receive Date: 20130918
  Receipt Date: 20131007
  Transmission Date: 20140711
  Serious: Yes (Hospitalization, Other)
  Sender: FDA-Public Use
  Company Number: PHHY2013AT085986

PATIENT
  Sex: Female

DRUGS (6)
  1. GILENYA [Suspect]
     Indication: MULTIPLE SCLEROSIS RELAPSE
     Dosage: 0.5 MG, QD
     Route: 048
     Dates: start: 20130122, end: 20130723
  2. PRADAXA [Concomitant]
     Indication: ATRIAL FIBRILLATION
     Route: 048
     Dates: start: 201301
  3. EUTHYROX [Concomitant]
     Indication: THYROID DISORDER
     Dosage: 50 MG, QD
     Route: 048
  4. PANTOLOC ^BYK GULDEN^ [Concomitant]
     Indication: GASTRITIS
     Dosage: 20 MG, QD
     Route: 048
  5. DETRUSITOL [Concomitant]
     Indication: INCONTINENCE
     Dosage: 5 MG, QD
     Route: 048
  6. XATRAL [Concomitant]
     Indication: INCONTINENCE
     Dosage: 5 MG, BID
     Route: 048

REACTIONS (18)
  - Acute promyelocytic leukaemia [Unknown]
  - Lymphocyte count decreased [Recovering/Resolving]
  - Gamma-glutamyltransferase increased [Unknown]
  - Monocyte percentage increased [Unknown]
  - Activated partial thromboplastin time prolonged [Unknown]
  - Red blood cell count decreased [Unknown]
  - Haematocrit decreased [Unknown]
  - Mean cell haemoglobin concentration increased [Unknown]
  - Mean cell volume increased [Unknown]
  - Blood immunoglobulin M decreased [Unknown]
  - Blood immunoglobulin G decreased [Unknown]
  - Thrombin time prolonged [Unknown]
  - International normalised ratio decreased [Unknown]
  - C-reactive protein increased [Unknown]
  - White blood cell count decreased [Unknown]
  - Lymphocyte percentage decreased [Unknown]
  - Alanine aminotransferase increased [Unknown]
  - Multiple sclerosis relapse [Unknown]
